FAERS Safety Report 8166849-7 (Version None)
Quarter: 2012Q1

REPORT INFORMATION
  Report Type: 
  Country: None (occurrence: None)
  Receive Date: 20120227
  Receipt Date: 20120221
  Transmission Date: 20120608
  Serious: Yes (Hospitalization, Disabling)
  Sender: FDA-Public Use
  Company Number: US-ROCHE-401244

PATIENT
  Sex: Male
  Weight: 89.8 kg

DRUGS (4)
  1. ACCUTANE [Suspect]
     Indication: ACNE
     Dosage: FORMULATION = CAPSULE
     Route: 048
     Dates: start: 19890216, end: 19890818
  2. ACCUTANE [Suspect]
     Dosage: FORMULATION = CAPSULE
     Route: 048
     Dates: start: 19900313, end: 19901216
  3. ACETAMINOPHEN [Concomitant]
     Indication: PRODUCT USED FOR UNKNOWN INDICATION
     Route: 048
  4. ACCUTANE [Suspect]
     Dosage: FORMULATION = UNKNOWN
     Route: 048
     Dates: start: 19941229, end: 19950319

REACTIONS (25)
  - RENAL DISORDER [None]
  - PROTEINURIA [None]
  - OBESITY [None]
  - MUSCLE SPASMS [None]
  - DEHYDRATION [None]
  - EPISTAXIS [None]
  - RENAL FAILURE CHRONIC [None]
  - TREMOR [None]
  - HYPERTENSION [None]
  - TRANSPLANT REJECTION [None]
  - ASTHENIA [None]
  - OSTEITIS [None]
  - INTERNAL INJURY [None]
  - DECREASED APPETITE [None]
  - KIDNEY TRANSPLANT REJECTION [None]
  - COMPLICATIONS OF TRANSPLANTED KIDNEY [None]
  - FRACTURE [None]
  - RENAL FAILURE [None]
  - GLOMERULOSCLEROSIS [None]
  - FATIGUE [None]
  - GASTROOESOPHAGEAL REFLUX DISEASE [None]
  - HYPERLIPIDAEMIA [None]
  - ABDOMINAL DISTENSION [None]
  - ABDOMINAL TENDERNESS [None]
  - DYSPEPSIA [None]
